FAERS Safety Report 4959520-3 (Version None)
Quarter: 2006Q1

REPORT INFORMATION
  Report Type: 
  Country: None (occurrence: None)
  Receive Date: 20060331
  Receipt Date: 20050329
  Transmission Date: 20060701
  Serious: Yes (Hospitalization)
  Sender: FDA-Public Use
  Company Number: US-GLAXOSMITHKLINE-A0555653A

PATIENT
  Age: 12 Year
  Sex: Male
  Weight: 53.2 kg

DRUGS (10)
  1. PAXIL [Suspect]
     Indication: ANXIETY
     Route: 048
     Dates: start: 20011016, end: 20020701
  2. CIPROFLOXACIN [Concomitant]
     Indication: OTITIS MEDIA
     Route: 001
  3. ADVIL [Concomitant]
     Indication: PAIN
  4. SEROQUEL [Concomitant]
     Dosage: 50MG AT NIGHT
  5. DEPAKOTE [Concomitant]
  6. RISPERDAL [Concomitant]
  7. RANITIDINE [Concomitant]
     Dosage: 150MG AT NIGHT
  8. XANAX [Concomitant]
     Indication: ANXIETY
     Dosage: .25MG AS REQUIRED
  9. ZOLOFT [Concomitant]
     Route: 048
  10. AMBIEN [Concomitant]
     Route: 048

REACTIONS (17)
  - AGGRESSION [None]
  - AGITATION [None]
  - ANGER [None]
  - ANXIETY [None]
  - HALLUCINATION [None]
  - HOMICIDAL IDEATION [None]
  - HOSTILITY [None]
  - IMPULSIVE BEHAVIOUR [None]
  - INTERMITTENT EXPLOSIVE DISORDER [None]
  - MOOD SWINGS [None]
  - NIGHTMARE [None]
  - PARANOIA [None]
  - SELF MUTILATION [None]
  - SUICIDAL IDEATION [None]
  - SYNCOPE [None]
  - THEFT [None]
  - WEIGHT INCREASED [None]
